FAERS Safety Report 9285391 (Version 1)
Quarter: 2013Q2

REPORT INFORMATION
  Report Type: Spontaneous
  Country: US (occurrence: None)
  Receive Date: 20130510
  Receipt Date: 20130510
  Transmission Date: 20140414
  Serious: Yes (Death)
  Sender: FDA-Public Use
  Company Number: None

PATIENT
  Age: 63 Year
  Sex: Male

DRUGS (5)
  1. PROGRAF [Suspect]
     Indication: LUNG TRANSPLANT
     Dosage: 0.5MG  BID  ORAL
     Route: 048
     Dates: start: 20091028, end: 20130411
  2. ENOXAPARIN [Concomitant]
  3. MULTIVITAMINS [Concomitant]
  4. FOLIC ACID [Concomitant]
  5. VITAMIN D2 [Concomitant]

REACTIONS (1)
  - Death [None]
